FAERS Safety Report 6016816-4 (Version None)
Quarter: 2008Q4

REPORT INFORMATION
  Report Type: 
  Country: None (occurrence: None)
  Receive Date: 20081219
  Receipt Date: 20081207
  Transmission Date: 20090506
  Serious: Yes (Other)
  Sender: FDA-Public Use
  Company Number: ENT 2008-0188

PATIENT
  Age: 71 Year
  Sex: Male

DRUGS (3)
  1. COMTAN [Suspect]
     Indication: PARKINSON'S DISEASE
     Dosage: 200 MG (100 MG, 2 IN 1 D)
     Route: 048
     Dates: start: 20081009, end: 20081029
  2. COMTAN [Suspect]
     Indication: PERITONEAL DIALYSIS
     Dosage: 200 MG (100 MG, 2 IN 1 D)
     Route: 048
     Dates: start: 20081009, end: 20081029
  3. CARBIDOPA + LEVODOPA [Concomitant]

REACTIONS (4)
  - DRUG ERUPTION [None]
  - ERYTHEMA MULTIFORME [None]
  - PNEUMONIA ASPIRATION [None]
  - PYREXIA [None]
